FAERS Safety Report 14240470 (Version 1)
Quarter: 2017Q4

REPORT INFORMATION
  Report Type: Spontaneous
  Country: US (occurrence: US)
  Receive Date: 20171130
  Receipt Date: 20171130
  Transmission Date: 20180321
  Serious: Yes (Other)
  Sender: FDA-Public Use
  Company Number: US-BAYER-2017-222134

PATIENT
  Age: 89 Year
  Sex: Male
  Weight: 76 kg

DRUGS (2)
  1. PHILLIPS^ LIQUID GELS STOOL SOFTENER [Suspect]
     Active Substance: DOCUSATE SODIUM
     Indication: GASTROINTESTINAL DISORDER
     Dosage: UNK
     Route: 048
     Dates: start: 201711, end: 201711
  2. COUMADIN [Concomitant]
     Active Substance: WARFARIN SODIUM

REACTIONS (5)
  - Ligament sprain [None]
  - Haemarthrosis [Recovered/Resolved]
  - Arthralgia [None]
  - International normalised ratio increased [Recovered/Resolved]
  - Drug ineffective [Recovered/Resolved]

NARRATIVE: CASE EVENT DATE: 201711
